FAERS Safety Report 8447347-X (Version None)
Quarter: 2012Q2

REPORT INFORMATION
  Report Type: 
  Country: None (occurrence: None)
  Receive Date: 20120619
  Receipt Date: 20120614
  Transmission Date: 20120825
  Serious: Yes (Other)
  Sender: FDA-Public Use
  Company Number: PHHY2012CH051400

PATIENT
  Age: 72 Year
  Sex: Male

DRUGS (2)
  1. ZOMETA [Suspect]
     Dosage: UNK UKN, UNK
     Dates: start: 20111014
  2. ZOMETA [Suspect]
     Indication: PROSTATE CANCER METASTATIC
     Dosage: UNK UKN, UNK
     Dates: start: 20110915

REACTIONS (3)
  - INFLAMMATION [None]
  - ACTINOMYCOSIS [None]
  - OSTEONECROSIS OF JAW [None]
